FAERS Safety Report 18611901 (Version 1)
Quarter: 2020Q4

REPORT INFORMATION
  Report Type: Report from Study
  Country: DE (occurrence: DE)
  Receive Date: 20201214
  Receipt Date: 20201214
  Transmission Date: 20210114
  Serious: Yes (Hospitalization)
  Sender: FDA-Public Use
  Company Number: DE-PFIZER INC-2020490786

PATIENT
  Sex: Female

DRUGS (5)
  1. XELJANZ [Concomitant]
     Active Substance: TOFACITINIB CITRATE
     Dosage: 10 MG
     Route: 065
     Dates: start: 20200730, end: 20201026
  2. LEFLUNOMIDE. [Suspect]
     Active Substance: LEFLUNOMIDE
     Dosage: 20 MG, 1X/DAY
     Route: 065
     Dates: end: 202004
  3. NO SUBJECT DRUG [Suspect]
     Active Substance: UNSPECIFIED INGREDIENT
     Dosage: NO DOSE GIVEN
  4. METHOTREXATE SODIUM. [Suspect]
     Active Substance: METHOTREXATE SODIUM
     Dosage: 15 MG, PER WEEK
     Route: 065
  5. HYRIMOZ [Suspect]
     Active Substance: ADALIMUMAB-ADAZ
     Indication: RHEUMATOID ARTHRITIS
     Dosage: 40 MG EVERY 14 DAYS
     Route: 058
     Dates: end: 20200624

REACTIONS (1)
  - Rheumatoid arthritis [Recovered/Resolved]
